FAERS Safety Report 6668282-3 (Version None)
Quarter: 2010Q2

REPORT INFORMATION
  Report Type: 
  Country: None (occurrence: None)
  Receive Date: 20100405
  Receipt Date: 20100405
  Transmission Date: 20101027
  Serious: Yes (Hospitalization)
  Sender: FDA-Public Use
  Company Number: None

PATIENT
  Age: 40 Year
  Sex: Male
  Weight: 93.1 kg

DRUGS (1)
  1. CLONAZEPAM [Suspect]
     Indication: DEPRESSION
     Dosage: 0.5 MG BID PO ; 15/30 MG EVERY DAY PO
     Route: 047
     Dates: start: 20090923, end: 20100107

REACTIONS (1)
  - CONFUSIONAL STATE [None]
